FAERS Safety Report 9368913 (Version 2)
Quarter: 2013Q3

REPORT INFORMATION
  Report Type: Spontaneous
  Country: IN (occurrence: None)
  Receive Date: 20130621
  Receipt Date: 20130701
  Transmission Date: 20140515
  Serious: Yes (Other)
  Sender: FDA-Public Use
  Company Number: AUR-APL-2013-05030

PATIENT
  Age: 10 Year
  Sex: Male

DRUGS (8)
  1. ABACAVIR [Suspect]
     Indication: ANTIRETROVIRAL THERAPY
     Dosage: 300 MG 1 IN 1 D
  2. DIDANOSINE [Suspect]
     Indication: ANTIRETROVIRAL THERAPY
  3. EFAVIRENZ [Suspect]
     Indication: ANTIRETROVIRAL THERAPY
     Dates: start: 2005
  4. LAMIVUDINE [Suspect]
     Indication: ANTIRETROVIRAL THERAPY
     Dosage: TWO DIVIDED DOSES (120MG)
     Dates: start: 2005
  5. LOPINAVIR+RITONAVIR [Suspect]
     Indication: ANTIRETROVIRAL THERAPY
     Dosage: 2 DIVIDED DOSES (300 MG)
  6. STAVUDINE [Suspect]
     Indication: ANTIRETROVIRAL THERAPY
     Dates: start: 2005
  7. NEVIRAPINE [Suspect]
     Indication: ANTIRETROVIRAL THERAPY
     Dates: start: 2004, end: 2005
  8. ZIDOVUDINE (ZIDOVUDINE) [Suspect]
     Indication: ANTIRETROVIRAL THERAPY
     Dates: start: 2004, end: 2005

REACTIONS (9)
  - Treatment failure [None]
  - Oral candidiasis [None]
  - Abdominal pain [None]
  - Molluscum contagiosum [None]
  - Cachexia [None]
  - Abdominal lymphadenopathy [None]
  - Oesophageal candidiasis [None]
  - Drug resistance [None]
  - Weight decreased [None]
